FAERS Safety Report 6037691-8 (Version None)
Quarter: 2009Q1

REPORT INFORMATION
  Report Type: 
  Country: None (occurrence: None)
  Receive Date: 20090114
  Receipt Date: 20090112
  Transmission Date: 20090719
  Serious: Yes (Other)
  Sender: FDA-Public Use
  Company Number: US-AMGEN-US327994

PATIENT
  Sex: Male

DRUGS (1)
  1. NPLATE [Suspect]
     Indication: IDIOPATHIC THROMBOCYTOPENIC PURPURA
     Dates: start: 20081101

REACTIONS (3)
  - HAEMOGLOBIN DECREASED [None]
  - RED BLOOD CELL ABNORMALITY [None]
  - WHITE BLOOD CELL COUNT DECREASED [None]
